FAERS Safety Report 13428679 (Version 1)
Quarter: 2017Q2

REPORT INFORMATION
  Report Type: Report from Study
  Country: US (occurrence: US)
  Receive Date: 20170411
  Receipt Date: 20170411
  Transmission Date: 20170830
  Serious: Yes (Hospitalization)
  Sender: FDA-Public Use
  Company Number: US-TEVA-757861USA

PATIENT
  Age: 49 Year
  Sex: Female

DRUGS (2)
  1. TYLENOL [Suspect]
     Active Substance: ACETAMINOPHEN
     Dosage: TOOK 2
     Route: 065
  2. COPAXONE [Suspect]
     Active Substance: GLATIRAMER ACETATE
     Indication: MULTIPLE SCLEROSIS
     Route: 058
     Dates: start: 20170324, end: 20170331

REACTIONS (11)
  - Tremor [Recovering/Resolving]
  - Pyrexia [Recovering/Resolving]
  - Hepatic enzyme increased [Recovering/Resolving]
  - Injection site swelling [Recovering/Resolving]
  - Oxygen saturation decreased [Recovering/Resolving]
  - Injection site rash [Recovering/Resolving]
  - Drug hypersensitivity [Not Recovered/Not Resolved]
  - Chills [Recovering/Resolving]
  - Hypertension [Recovering/Resolving]
  - Heart rate increased [Recovering/Resolving]
  - Injection site erythema [Recovering/Resolving]

NARRATIVE: CASE EVENT DATE: 2017
